FAERS Safety Report 4787055-X (Version None)
Quarter: 2005Q3

REPORT INFORMATION
  Report Type: 
  Country: None (occurrence: None)
  Receive Date: 20050930
  Receipt Date: 20050914
  Transmission Date: 20060218
  Serious: Yes (Disabling)
  Sender: FDA-Public Use
  Company Number: 2005090011

PATIENT
  Sex: Female

DRUGS (3)
  1. ASTELIN [Suspect]
     Indication: RHINITIS
     Dosage: 1-2 SPRAYS BID, NASALLY
     Route: 045
     Dates: start: 20021201, end: 20050601
  2. NORVASC (AMODIPINE BESILATE) [Concomitant]
  3. COUGH/COLD MEDICATION (COUGH AND COLD PREPARATIONS) [Concomitant]

REACTIONS (1)
  - NASAL SEPTUM PERFORATION [None]
